FAERS Safety Report 15879473 (Version 2)
Quarter: 2019Q1

REPORT INFORMATION
  Report Type: Spontaneous
  Country: BE (occurrence: BE)
  Receive Date: 20190128
  Receipt Date: 20190206
  Transmission Date: 20190417
  Serious: Yes (Hospitalization)
  Sender: FDA-Public Use
  Company Number: BE-009507513-1901BEL007742

PATIENT
  Age: 78 Year
  Sex: Male
  Weight: 72 kg

DRUGS (3)
  1. AMLOR [Concomitant]
     Active Substance: AMLODIPINE BESYLATE
     Indication: HYPERTENSION
     Dosage: 5 MILLIGRAM, QD
     Route: 048
  2. ONCOTICE [Suspect]
     Active Substance: BACILLUS CALMETTE-GUERIN SUBSTRAIN TICE LIVE ANTIGEN
     Indication: BLADDER CANCER
     Dosage: 1 DOSAGE FORM, QW, FROM 12/OCT/2017 TO 16/NOV/2017, FROM 22/FEB/2018 TO 08/MAR/2018, FROM 14/JUN/201
     Dates: start: 20171012, end: 20180628
  3. TRAMADOL HYDROCHLORIDE. [Concomitant]
     Active Substance: TRAMADOL HYDROCHLORIDE
     Indication: BACK PAIN
     Dosage: 200 MILLIGRAM, QD
     Route: 048

REACTIONS (4)
  - Granuloma [Unknown]
  - Osteomyelitis [Unknown]
  - Mycobacterial infection [Unknown]
  - Intervertebral discitis [Unknown]
